FAERS Safety Report 7771146-5 (Version None)
Quarter: 2011Q3

REPORT INFORMATION
  Report Type: 
  Country: None (occurrence: None)
  Receive Date: 20110922
  Receipt Date: 20110418
  Transmission Date: 20111222
  Serious: Yes (Other)
  Sender: FDA-Public Use
  Company Number: US-ASTRAZENECA-2006UW08048

PATIENT
  Age: 18183 Day
  Sex: Female

DRUGS (6)
  1. SEROQUEL [Suspect]
     Indication: BIPOLAR DISORDER
     Route: 048
     Dates: start: 20041001, end: 20050601
  2. DEXETRIM [Concomitant]
  3. HALDOL [Concomitant]
  4. SEROQUEL [Suspect]
     Route: 048
     Dates: start: 20041101, end: 20050501
  5. TOPAMAX [Concomitant]
  6. LEXAPRO [Concomitant]

REACTIONS (4)
  - TYPE 2 DIABETES MELLITUS [None]
  - WEIGHT INCREASED [None]
  - DIABETIC KETOACIDOSIS [None]
  - PANCREATITIS [None]
